FAERS Safety Report 5252086-2 (Version None)
Quarter: 2007Q1

REPORT INFORMATION
  Report Type: 
  Country: None (occurrence: None)
  Receive Date: 20070228
  Receipt Date: 20070219
  Transmission Date: 20070707
  Serious: Yes (Life-Threatening, Hospitalization)
  Sender: FDA-Public Use
  Company Number: GB-ABBOTT-07P-167-0359711-00

PATIENT
  Age: 31 Year
  Sex: Male
  Weight: 93 kg

DRUGS (2)
  1. SIBUTRAMINE [Suspect]
     Indication: WEIGHT CONTROL
     Dates: start: 20061019, end: 20061229
  2. SIBUTRAMINE [Suspect]
     Dates: start: 20060804, end: 20061018

REACTIONS (1)
  - APPENDICITIS [None]
